FAERS Safety Report 5583547-4 (Version None)
Quarter: 2007Q4

REPORT INFORMATION
  Report Type: 
  Country: None (occurrence: None)
  Receive Date: 20071231
  Receipt Date: 20071212
  Transmission Date: 20080405
  Serious: Yes (Other)
  Sender: FDA-Public Use
  Company Number: 071205121

PATIENT
  Age: 76 Year
  Sex: Female

DRUGS (1)
  1. MUCINEX DM [Suspect]
     Indication: COUGH
     Dosage: 2TABL, 1 DOSE, ORAL
     Route: 048
     Dates: start: 20071202, end: 20071202

REACTIONS (2)
  - CAROTID ARTERY OCCLUSION [None]
  - CEREBROVASCULAR ACCIDENT [None]
